FAERS Safety Report 17767045 (Version 1)
Quarter: 2020Q2

REPORT INFORMATION
  Report Type: Spontaneous
  Country: NL (occurrence: NL)
  Receive Date: 20200511
  Receipt Date: 20200511
  Transmission Date: 20200714
  Serious: Yes (Hospitalization)
  Sender: FDA-Public Use
  Company Number: NL-BEH-2020114105

PATIENT
  Age: 55 Year
  Sex: Female

DRUGS (13)
  1. TAURINE [Concomitant]
     Active Substance: TAURINE
     Dosage: 1 DOSAGE FORM (1 TABLET), QD (AT 08 O^CLOCK)
     Route: 065
  2. GLICLAZIDE [Concomitant]
     Active Substance: GLICLAZIDE
     Dosage: 30 MILLIGRAM, QD
     Route: 048
  3. MORPHINE [Concomitant]
     Active Substance: MORPHINE
  4. PRIVIGEN [Suspect]
     Active Substance: HUMAN IMMUNOGLOBULIN G
     Dosage: UNK
     Route: 042
     Dates: start: 20200225, end: 20200228
  5. PRIVIGEN [Suspect]
     Active Substance: HUMAN IMMUNOGLOBULIN G
     Indication: CHRONIC INFLAMMATORY DEMYELINATING POLYRADICULONEUROPATHY
     Dosage: 55 GRAM, QD
     Route: 042
     Dates: start: 20200225, end: 20200228
  6. CHOLECALCIFEROL [Concomitant]
     Active Substance: CHOLECALCIFEROL
     Dosage: 5600 INTERNATIONAL UNIT, QW
     Route: 048
  7. FENTANYL. [Concomitant]
     Active Substance: FENTANYL
     Dosage: UNK UNK, QOD
     Route: 062
  8. MULTI VIT [Concomitant]
     Active Substance: VITAMINS
     Dosage: 1 DOSAGE FORM (1 TABLET), QD
     Route: 065
  9. DAVITAMON [Concomitant]
     Dosage: UNK, QD, 7 TABLETS DAILY
  10. MAGNESIUM CITRATE. [Concomitant]
     Active Substance: MAGNESIUM CITRATE
     Dosage: UNK, QD, 7 TABLETS DAILY
  11. PRIVIGEN [Suspect]
     Active Substance: HUMAN IMMUNOGLOBULIN G
     Dosage: UNK
     Route: 042
     Dates: start: 20200225, end: 20200228
  12. PRIVIGEN [Suspect]
     Active Substance: HUMAN IMMUNOGLOBULIN G
     Dosage: UNK
     Route: 042
     Dates: start: 20200225, end: 20200228
  13. HYDROXOCOBALAMIN [Concomitant]
     Active Substance: HYDROXOCOBALAMIN
     Dosage: 1000 MICROGRAM, BIW
     Route: 065

REACTIONS (1)
  - Headache [Recovered/Resolved]

NARRATIVE: CASE EVENT DATE: 20200226
